FAERS Safety Report 4327798-5 (Version None)
Quarter: 2004Q1

REPORT INFORMATION
  Report Type: 
  Country: None (occurrence: None)
  Receive Date: 20040325
  Receipt Date: 20040309
  Transmission Date: 20041129
  Serious: Yes (Hospitalization)
  Sender: FDA-Public Use
  Company Number: AU-JNJFOC-20040304478

PATIENT
  Age: 88 Year
  Sex: Female

DRUGS (8)
  1. TRAMADOL HCL [Suspect]
     Indication: GENERAL SYMPTOM
     Dosage: 300  MG, 1 IN 1 DAY, ORAL
     Route: 048
     Dates: start: 20021206, end: 20021212
  2. DIABEX (METFORMIN HYDROCHLORIDE) TABLETS [Suspect]
     Indication: DIABETES MELLITUS
     Dosage: , 3 IN 1 DAY, ORAL
     Route: 048
     Dates: end: 20021212
  3. DIAMICRON (GLICLAZIDE) [Concomitant]
  4. METOPROLOL (METOPROLOL) [Concomitant]
  5. ACETAMINOPHEN [Concomitant]
  6. ZESTRIL [Suspect]
     Indication: ESSENTIAL HYPERTENSION
     Dosage: 5 MG, IN 1 DAY, ORAL
     Route: 048
     Dates: end: 20021212
  7. DAPA TABS (INDAPAMIDE) [Suspect]
     Indication: ESSENTIAL HYPERTENSION
  8. ASPIRIN [Suspect]
     Indication: MYOCARDIAL ISCHAEMIA
     Dosage: 300 MG, IN 1 DAY, ORAL
     Route: 048
     Dates: end: 20021212

REACTIONS (4)
  - BALANCE DISORDER [None]
  - HYPONATRAEMIA [None]
  - RENAL FAILURE [None]
  - VOMITING [None]
